FAERS Safety Report 24340291 (Version 1)
Quarter: 2024Q3

REPORT INFORMATION
  Report Type: Report from Study
  Country: US (occurrence: US)
  Receive Date: 20240919
  Receipt Date: 20240919
  Transmission Date: 20241017
  Serious: Yes (Other)
  Sender: ABBVIE
  Company Number: US-ABBVIE-5926565

PATIENT
  Sex: Female

DRUGS (37)
  1. VENCLEXTA [Suspect]
     Active Substance: VENETOCLAX
     Indication: Plasma cell myeloma
     Dosage: TAKE 8 TABLET(S) BY MOUTH (800MG) EVERY DAY
     Route: 048
  2. GAZYVA [Concomitant]
     Active Substance: OBINUTUZUMAB
     Indication: Neoplasm malignant
  3. HEMLIBRA [Concomitant]
     Active Substance: EMICIZUMAB-KXWH
     Indication: Neoplasm malignant
  4. HERCEPTIN [Concomitant]
     Active Substance: TRASTUZUMAB
     Indication: Neoplasm malignant
  5. KADCYLA [Concomitant]
     Active Substance: ADO-TRASTUZUMAB EMTANSINE
     Indication: Neoplasm malignant
  6. LUCENTIS [Concomitant]
     Active Substance: RANIBIZUMAB
     Indication: Eye disorder
  7. PHESGO [Concomitant]
     Active Substance: HYALURONIDASE-ZZXF\PERTUZUMAB\TRASTUZUMAB
     Indication: Neoplasm malignant
  8. PULMOZYME [Concomitant]
     Active Substance: DORNASE ALFA
     Indication: Respiratory disorder
  9. RITUXIMAB [Concomitant]
     Active Substance: RITUXIMAB
     Indication: Transplant
  10. TARCEVA [Concomitant]
     Active Substance: ERLOTINIB HYDROCHLORIDE
     Indication: Neoplasm malignant
  11. TECENTRIQ [Concomitant]
     Active Substance: ATEZOLIZUMAB
     Indication: Neoplasm malignant
  12. VALCYTE [Concomitant]
     Active Substance: VALGANCICLOVIR HYDROCHLORIDE
     Indication: Transplant
  13. XELODA [Concomitant]
     Active Substance: CAPECITABINE
     Indication: Neoplasm malignant
  14. XOLAIR [Concomitant]
     Active Substance: OMALIZUMAB
     Indication: Inflammation
  15. ZELBORAF [Concomitant]
     Active Substance: VEMURAFENIB
     Indication: Neoplasm malignant
  16. ACTEMRA [Concomitant]
     Active Substance: TOCILIZUMAB
     Indication: Inflammation
  17. ALECENSA [Concomitant]
     Active Substance: ALECTINIB HYDROCHLORIDE
     Indication: Neoplasm malignant
  18. AVASTIN [Concomitant]
     Active Substance: BEVACIZUMAB
     Indication: Neoplasm malignant
  19. CELLCEPT [Concomitant]
     Active Substance: MYCOPHENOLATE MOFETIL
     Indication: Transplant
  20. ERIVEDGE [Concomitant]
     Active Substance: VISMODEGIB
     Indication: Chemotherapy
  21. FUZEON [Concomitant]
     Active Substance: ENFUVIRTIDE
     Indication: Viral infection
  22. GAVRETO [Concomitant]
     Active Substance: PRALSETINIB
     Indication: Neoplasm malignant
  23. PERJETA [Concomitant]
     Active Substance: PERTUZUMAB
     Indication: Chemotherapy
  24. TRASTUZUMAB [Concomitant]
     Active Substance: TRASTUZUMAB
     Indication: Chemotherapy
  25. COPEGUS [Concomitant]
     Active Substance: RIBAVIRIN
     Indication: Antiviral treatment
  26. RIBAVIRIN [Concomitant]
     Active Substance: RIBAVIRIN
     Indication: Antiviral treatment
  27. FORTOVASE [Concomitant]
     Active Substance: SAQUINAVIR
     Indication: Antiviral treatment
  28. INVIRASE [Concomitant]
     Active Substance: SAQUINAVIR MESYLATE
     Indication: Antiviral treatment
  29. ACTIVASE [Concomitant]
     Active Substance: ALTEPLASE
     Indication: Cardiovascular disorder
  30. CATHFLO ACTIVASE [Concomitant]
     Active Substance: ALTEPLASE
     Indication: Cardiovascular disorder
  31. TNKASE [Concomitant]
     Active Substance: TENECTEPLASE
     Indication: Cardiovascular disorder
  32. PEGASYS [Concomitant]
     Active Substance: PEGINTERFERON ALFA-2A
     Indication: Antiviral treatment
  33. MABTHERA [Concomitant]
     Active Substance: RITUXIMAB
     Indication: Neoplasm malignant
  34. RITUXAN [Concomitant]
     Active Substance: RITUXIMAB
     Indication: Chemotherapy
  35. TOCILIZUMAB [Concomitant]
     Active Substance: TOCILIZUMAB
     Indication: Inflammation
  36. IBANDRONATE SODIUM [Concomitant]
     Active Substance: IBANDRONATE SODIUM
     Indication: Bone metabolism disorder
  37. BONIVA [Concomitant]
     Active Substance: IBANDRONATE SODIUM
     Indication: Bone metabolism disorder

REACTIONS (3)
  - Hip fracture [Recovering/Resolving]
  - Rehabilitation therapy [Unknown]
  - Off label use [Not Recovered/Not Resolved]

NARRATIVE: CASE EVENT DATE: 20240101
